FAERS Safety Report 9122676 (Version 1)
Quarter: 2013Q1

REPORT INFORMATION
  Report Type: Spontaneous
  Country: US (occurrence: None)
  Receive Date: 20130225
  Receipt Date: 20130225
  Transmission Date: 20140127
  Serious: Yes (Other)
  Sender: FDA-Public Use
  Company Number: None

PATIENT
  Age: 51 Year
  Sex: Female
  Weight: 56.7 kg

DRUGS (1)
  1. CIPROFLOXACIN OPHTHALMIC SOLUTIO 0.3% AS BASE , 5 ML, RX ONLY HI-TECH PHARMACAL [Suspect]
     Indication: EAR INFECTION
     Dosage: 4 DROPS INTO LEFT EAR TWICE DAILY OTHER
     Dates: start: 20121218, end: 20121221

REACTIONS (7)
  - Hypersensitivity [None]
  - Swelling face [None]
  - Visual impairment [None]
  - Feeling hot [None]
  - Skin disorder [None]
  - Pruritus [None]
  - Skin exfoliation [None]
